FAERS Safety Report 16127174 (Version 1)
Quarter: 2019Q2

REPORT INFORMATION
  Report Type: Spontaneous
  Country: US (occurrence: US)
  Receive Date: 20190327
  Receipt Date: 20190327
  Transmission Date: 20190711
  Serious: Yes (Disabling)
  Sender: FDA-Public Use
  Company Number: None

PATIENT
  Age: 41 Year
  Sex: Female
  Weight: 69.75 kg

DRUGS (1)
  1. CIPROFLOXACIN HCL 500 MG [Suspect]
     Active Substance: CIPROFLOXACIN HYDROCHLORIDE
     Indication: URINARY TRACT INFECTION
     Dosage: ?          QUANTITY:10 TABLET(S);?
     Route: 048
     Dates: start: 20190312, end: 20190315

REACTIONS (7)
  - Paraesthesia [None]
  - Tremor [None]
  - Burning sensation [None]
  - Chills [None]
  - Asthenia [None]
  - Hypoaesthesia [None]
  - Feeling cold [None]

NARRATIVE: CASE EVENT DATE: 20190316
